FAERS Safety Report 4496704-5 (Version None)
Quarter: 2004Q4

REPORT INFORMATION
  Report Type: 
  Country: None (occurrence: None)
  Receive Date: 20040923
  Receipt Date: 20040602
  Transmission Date: 20050328
  Serious: No
  Sender: FDA-Public Use
  Company Number: P2004000003

PATIENT
  Age: 81 Year
  Sex: Male
  Weight: 97.5 kg

DRUGS (3)
  1. PLENAXIS [Suspect]
     Indication: PROSTATE CANCER
     Dosage: 100 MG, SINGLE, INTRAMUSCULAR
     Route: 030
     Dates: start: 20040429, end: 20040429
  2. PLENAXIS [Suspect]
     Indication: PROSTATE CANCER
     Dosage: 100 MG, SINGLE, INTRAMUSCULAR
     Route: 030
     Dates: start: 20040513, end: 20040513
  3. COUMADIN [Concomitant]

REACTIONS (2)
  - HYPERHIDROSIS [None]
  - PALLOR [None]
